FAERS Safety Report 8356257-8 (Version None)
Quarter: 2012Q2

REPORT INFORMATION
  Report Type: 
  Country: None (occurrence: None)
  Receive Date: 20120514
  Receipt Date: 20120503
  Transmission Date: 20120825
  Serious: Yes (Other)
  Sender: FDA-Public Use
  Company Number: US-JNJFOC-20120508366

PATIENT
  Sex: Male
  Weight: 190 kg

DRUGS (7)
  1. TESTIM [Suspect]
     Indication: MYOPATHY
     Route: 062
     Dates: start: 20101201, end: 20120101
  2. EPZICOM [Suspect]
     Indication: HIV INFECTION
     Route: 065
  3. REYATAZ [Suspect]
     Indication: HIV INFECTION
     Route: 065
  4. INTELENCE [Suspect]
     Indication: HIV INFECTION
     Route: 048
  5. TESTIM [Suspect]
     Indication: BLOOD TESTOSTERONE DECREASED
     Route: 062
     Dates: start: 20101201, end: 20120101
  6. TRUVADA [Suspect]
     Indication: HIV INFECTION
     Route: 065
  7. SELZENTRY [Suspect]
     Indication: HIV INFECTION
     Route: 065

REACTIONS (2)
  - MITOCHONDRIAL MYOPATHY ACQUIRED [None]
  - BLOOD CREATINE PHOSPHOKINASE INCREASED [None]
